FAERS Safety Report 6109273-0 (Version None)
Quarter: 2009Q1

REPORT INFORMATION
  Report Type: 
  Country: None (occurrence: None)
  Receive Date: 20090306
  Receipt Date: 20090219
  Transmission Date: 20090719
  Serious: Yes (Other)
  Sender: FDA-Public Use
  Company Number: B0561807A

PATIENT
  Age: 57 Year
  Sex: Female

DRUGS (1)
  1. THIOGUANINE [Suspect]
     Indication: CROHN'S DISEASE

REACTIONS (4)
  - CHOLESTASIS [None]
  - PANCYTOPENIA [None]
  - PORTAL HYPERTENSION [None]
  - REFUSAL OF TREATMENT BY PATIENT [None]
